FAERS Safety Report 9270873 (Version 1)
Quarter: 2013Q2

REPORT INFORMATION
  Report Type: Spontaneous
  Country: US (occurrence: US)
  Receive Date: 20130505
  Receipt Date: 20130505
  Transmission Date: 20140414
  Serious: No
  Sender: FDA-Public Use
  Company Number: US-009507513-1305USA000548

PATIENT
  Sex: Male

DRUGS (1)
  1. JANUMET XR [Suspect]
     Dosage: UNK, QD
     Route: 048
     Dates: start: 20130427

REACTIONS (1)
  - Drug ineffective [Unknown]
